FAERS Safety Report 5661628-4 (Version None)
Quarter: 2008Q1

REPORT INFORMATION
  Report Type: 
  Country: None (occurrence: None)
  Receive Date: 20080312
  Receipt Date: 20080304
  Transmission Date: 20080703
  Serious: Yes (Other)
  Sender: FDA-Public Use
  Company Number: FR-AVENTIS-200713396FR

PATIENT
  Age: 25 Year
  Sex: Female

DRUGS (4)
  1. LANTUS [Suspect]
     Route: 058
  2. HUMALOG [Concomitant]
  3. SPASFON                            /00934601/ [Concomitant]
     Dates: start: 20071125
  4. FOLIC ACID [Concomitant]
     Dates: start: 20070701

REACTIONS (2)
  - DRUG EXPOSURE DURING PREGNANCY [None]
  - PREGNANCY INDUCED HYPERTENSION [None]
